APPROVED DRUG PRODUCT: RISPERIDONE
Active Ingredient: RISPERIDONE
Strength: 4MG
Dosage Form/Route: TABLET;ORAL
Application: A201003 | Product #006 | TE Code: AB
Applicant: AJANTA PHARMA LTD
Approved: Aug 24, 2011 | RLD: No | RS: No | Type: RX